FAERS Safety Report 16758988 (Version 1)
Quarter: 2019Q4

REPORT INFORMATION
  Report Type: Spontaneous
  Country: US (occurrence: US)
  Receive Date: 20190829
  Receipt Date: 20190829
  Transmission Date: 20200122
  Serious: No
  Sender: FDA-Public Use
  Company Number: None

PATIENT
  Age: 64 Year
  Sex: Female
  Weight: 78.3 kg

DRUGS (1)
  1. MONISTAT 3 [Suspect]
     Active Substance: MICONAZOLE NITRATE
     Indication: VULVOVAGINAL MYCOTIC INFECTION
     Dosage: ?          QUANTITY:1 APPLICATOR;?
     Route: 067
     Dates: start: 20190825, end: 20190825

REACTIONS (2)
  - Application site pain [None]
  - Application site pruritus [None]

NARRATIVE: CASE EVENT DATE: 20190825
